FAERS Safety Report 7080631-3 (Version None)
Quarter: 2010Q4

REPORT INFORMATION
  Report Type: 
  Country: None (occurrence: None)
  Receive Date: 20101103
  Receipt Date: 20101102
  Transmission Date: 20110411
  Serious: Yes (Hospitalization)
  Sender: FDA-Public Use
  Company Number: US-BRISTOL-MYERS SQUIBB COMPANY-15308547

PATIENT
  Age: 30 Year
  Sex: Female
  Weight: 73 kg

DRUGS (5)
  1. ABILIFY [Suspect]
  2. AMITRIPTYLINE HCL [Suspect]
  3. BACLOFAN [Concomitant]
  4. PHENERGAN [Concomitant]
  5. ALBUTEROL INHALER [Concomitant]

REACTIONS (1)
  - HALLUCINATION, AUDITORY [None]
